FAERS Safety Report 10158202 (Version 1)
Quarter: 2014Q2

REPORT INFORMATION
  Report Type: Spontaneous
  Country: NG (occurrence: NG)
  Receive Date: 20140507
  Receipt Date: 20140507
  Transmission Date: 20141212
  Serious: Yes (Other)
  Sender: FDA-Public Use
  Company Number: NG-PERRIGO-14NG004486

PATIENT
  Age: 42 Year
  Sex: Female

DRUGS (4)
  1. ACETAMINOPHEN 650MG ER 544 [Suspect]
     Indication: PYREXIA
     Dosage: 1000 MG, SINGLE
     Route: 048
  2. ZIDOVUDINE [Suspect]
     Indication: HIV INFECTION
     Dosage: UNKNOWN, UNKNOWN
     Route: 065
  3. NEVIRAPINE [Suspect]
     Indication: HIV INFECTION
     Dosage: UNKNOWN, UNKNOWN
     Route: 065
  4. COTRIMOXAZOLE [Suspect]
     Indication: PRODUCT USED FOR UNKNOWN INDICATION
     Dosage: UNKNOWN, UNKNOWN
     Route: 065

REACTIONS (2)
  - Convulsion [Recovered/Resolved]
  - Drug interaction [Recovered/Resolved]
